FAERS Safety Report 15432695 (Version 4)
Quarter: 2020Q1

REPORT INFORMATION
  Report Type: Spontaneous
  Country: PL (occurrence: PL)
  Receive Date: 20180927
  Receipt Date: 20200206
  Transmission Date: 20200409
  Serious: Yes (Hospitalization, Other)
  Sender: FDA-Public Use
  Company Number: PL-AUROBINDO-AUR-APL-2018-047425

PATIENT
  Age: 73 Year
  Sex: Female

DRUGS (12)
  1. TRITACE [Suspect]
     Active Substance: RAMIPRIL
     Indication: HYPERTENSION
     Dosage: UNK
     Route: 048
  2. ACARD [Suspect]
     Active Substance: ASPIRIN
     Indication: PROPHYLAXIS
     Dosage: UNK
     Route: 065
  3. DIAPREL [Suspect]
     Active Substance: GLICLAZIDE
     Dosage: UNK
     Route: 048
  4. ACARD [Suspect]
     Active Substance: ASPIRIN
     Indication: CARDIOVASCULAR EVENT PROPHYLAXIS
     Dosage: UNK
     Route: 048
  5. DIAPREL [Suspect]
     Active Substance: GLICLAZIDE
     Dosage: UNK
     Route: 048
  6. SIOFOR [Suspect]
     Active Substance: METFORMIN HYDROCHLORIDE
     Indication: DIABETES MELLITUS
     Dosage: UNK
     Route: 048
  7. DIUVER [Suspect]
     Active Substance: TORSEMIDE
     Indication: HYPERTENSION
     Dosage: UNK
     Route: 048
  8. DIAPREL [Suspect]
     Active Substance: GLICLAZIDE
     Indication: DIABETES MELLITUS
     Dosage: UNK
     Route: 048
  9. FURAGIN [Concomitant]
     Indication: URINARY TRACT INFECTION
     Dosage: UNK
     Route: 048
  10. BISOCARD [Suspect]
     Active Substance: BISOPROLOL
     Indication: HYPERTENSION
  11. ATORVASTATIN [Suspect]
     Active Substance: ATORVASTATIN
     Indication: DYSLIPIDAEMIA
     Dosage: UNK
     Route: 048
  12. BISOCARD [Suspect]
     Active Substance: BISOPROLOL
     Indication: ATRIAL FIBRILLATION
     Dosage: UNK
     Route: 048

REACTIONS (2)
  - Cardiac failure [Recovered/Resolved]
  - Hypertension [Recovered/Resolved]
